FAERS Safety Report 21078462 (Version 3)
Quarter: 2022Q4

REPORT INFORMATION
  Report Type: Spontaneous
  Country: CA (occurrence: CA)
  Receive Date: 20220713
  Receipt Date: 20221215
  Transmission Date: 20230113
  Serious: Yes (Death, Hospitalization, Disabling, Other)
  Sender: FDA-Public Use
  Company Number: CA-GILEAD-2022-0588584

PATIENT
  Age: 57 Year
  Sex: Male

DRUGS (11)
  1. EPCLUSA [Suspect]
     Active Substance: SOFOSBUVIR\VELPATASVIR
     Indication: Hepatitis C
     Dosage: UNK MG, UNK
     Route: 048
     Dates: start: 20220628, end: 20220920
  2. RIBAVIRIN [Suspect]
     Active Substance: RIBAVIRIN
     Indication: Hepatitis C
     Dosage: 600 MG, BID
     Route: 048
  3. NORFLOXACIN [Concomitant]
     Active Substance: NORFLOXACIN
  4. ZINC [Concomitant]
     Active Substance: ZINC
  5. RIFAXIMIN [Concomitant]
     Active Substance: RIFAXIMIN
  6. ZOPICLONE [Concomitant]
     Active Substance: ZOPICLONE
  7. VITAMIN B1 [Concomitant]
     Active Substance: THIAMINE HYDROCHLORIDE
  8. NADOLOL [Concomitant]
     Active Substance: NADOLOL
  9. SPIRONOLACTONE [Concomitant]
     Active Substance: SPIRONOLACTONE
  10. LACTULOSE [Concomitant]
     Active Substance: LACTULOSE
  11. FUROSEMIDE ACCORD [FUROSEMIDE SODIUM] [Concomitant]

REACTIONS (3)
  - Visual impairment [Not Recovered/Not Resolved]
  - Liver disorder [Not Recovered/Not Resolved]
  - Death [Fatal]

NARRATIVE: CASE EVENT DATE: 20220703
